FAERS Safety Report 6834154-4 (Version None)
Quarter: 2010Q3

REPORT INFORMATION
  Report Type: 
  Country: None (occurrence: None)
  Receive Date: 20100712
  Receipt Date: 20071106
  Transmission Date: 20110219
  Serious: No
  Sender: FDA-Public Use
  Company Number: US-PFIZER INC-2007028357

PATIENT
  Sex: Female
  Weight: 56.2 kg

DRUGS (15)
  1. CHANTIX [Suspect]
     Indication: SMOKING CESSATION THERAPY
     Dates: start: 20070101, end: 20070801
  2. PREDNISONE [Suspect]
     Indication: BRONCHITIS
     Dates: start: 20070301
  3. LEVAQUIN [Suspect]
     Indication: BRONCHITIS
     Dates: start: 20070301
  4. ADVAIR DISKUS 100/50 [Concomitant]
  5. PREMPRO [Concomitant]
  6. MONTELUKAST SODIUM [Concomitant]
  7. ZYRTEC [Concomitant]
  8. MUCINEX [Concomitant]
  9. VITAMIN E [Concomitant]
  10. ALLEGRA [Concomitant]
  11. XOPENEX [Concomitant]
  12. BUDESONIDE [Concomitant]
  13. NASONEX [Concomitant]
  14. SOFTENERS, EMOLLIENTS [Concomitant]
  15. VITAMIN C [Concomitant]

REACTIONS (6)
  - ABDOMINAL DISTENSION [None]
  - BRONCHITIS [None]
  - CONSTIPATION [None]
  - FLUID RETENTION [None]
  - SLEEP DISORDER [None]
  - WEIGHT INCREASED [None]
